FAERS Safety Report 18271731 (Version 1)
Quarter: 2020Q3

REPORT INFORMATION
  Report Type: Spontaneous
  Country: US (occurrence: US)
  Receive Date: 20200916
  Receipt Date: 20200916
  Transmission Date: 20201103
  Serious: No
  Sender: FDA-Public Use
  Company Number: US-KARYOPHARM-2020KPT000786

PATIENT

DRUGS (1)
  1. XPOVIO [Suspect]
     Active Substance: SELINEXOR
     Indication: DIFFUSE LARGE B-CELL LYMPHOMA
     Dosage: 60 MG, 2X/WEEK
     Route: 048
     Dates: start: 20200713, end: 20200817

REACTIONS (17)
  - Retching [Unknown]
  - Taste disorder [Unknown]
  - Cough [Unknown]
  - Dizziness [Recovering/Resolving]
  - Dyspnoea exertional [Not Recovered/Not Resolved]
  - Fatigue [Not Recovered/Not Resolved]
  - Nausea [Recovering/Resolving]
  - Somnolence [Not Recovered/Not Resolved]
  - Syncope [Unknown]
  - Weight decreased [Recovered/Resolved]
  - Neuropathy peripheral [Unknown]
  - Decreased appetite [Unknown]
  - Abdominal discomfort [Not Recovered/Not Resolved]
  - Pollakiuria [Unknown]
  - Abdominal pain upper [Unknown]
  - Confusional state [Recovering/Resolving]
  - Asthenia [Unknown]

NARRATIVE: CASE EVENT DATE: 202007
